FAERS Safety Report 7672075-8 (Version None)
Quarter: 2011Q3

REPORT INFORMATION
  Report Type: 
  Country: None (occurrence: None)
  Receive Date: 20110809
  Receipt Date: 20110726
  Transmission Date: 20111222
  Serious: Yes (Hospitalization, Other)
  Sender: FDA-Public Use
  Company Number: PHHY2011DE67808

PATIENT
  Sex: Male
  Weight: 70 kg

DRUGS (13)
  1. BETA BLOCKING AGENTS [Concomitant]
     Dates: end: 20110201
  2. ATENOLOL [Suspect]
     Indication: HYPERTENSION
     Dosage: 2 DF, QD
     Route: 048
     Dates: start: 20090714, end: 20110201
  3. CHOLESTEROL- AND TRIGLYCERIDE REDUCERS [Concomitant]
  4. MOXONIDINE [Concomitant]
  5. RASILEZ [Suspect]
     Indication: HYPERTENSION
     Dosage: 150 MG/DAY
     Route: 048
     Dates: start: 20081118, end: 20090319
  6. ANTIHYPERTENSIVES [Concomitant]
  7. PLATELETS [Concomitant]
  8. ACE INHIBITORS [Concomitant]
     Dosage: DOSE INCREASED UPON STUDY ENTRY
  9. ANGIOTENSIN II [Concomitant]
     Dosage: DOSE INCREASED UPON STUDY ENTRY
  10. ZANIPRESS [Concomitant]
     Dosage: 20 MG+10 MG (ENALAPRIL + LERCANIDIPIN)
  11. CALCIUM CHANNEL BLOCKERS [Concomitant]
  12. NITRATES [Concomitant]
  13. ANTICOAGULANTS [Concomitant]

REACTIONS (15)
  - HYPERKALAEMIA [None]
  - BLOOD PRESSURE INCREASED [None]
  - HYPONATRAEMIA [None]
  - ELECTROCARDIOGRAM QRS COMPLEX SHORTENED [None]
  - HAEMOGLOBIN DECREASED [None]
  - BLOOD CREATININE INCREASED [None]
  - C-REACTIVE PROTEIN INCREASED [None]
  - ATRIOVENTRICULAR BLOCK COMPLETE [None]
  - LEFT VENTRICULAR HYPERTROPHY [None]
  - BLOOD GLUCOSE INCREASED [None]
  - ELECTROCARDIOGRAM QT SHORTENED [None]
  - ATRIAL FIBRILLATION [None]
  - ANGINA PECTORIS [None]
  - ALBUMIN URINE PRESENT [None]
  - CREATININE URINE INCREASED [None]
